FAERS Safety Report 10355382 (Version 1)
Quarter: 2014Q3

REPORT INFORMATION
  Report Type: Spontaneous
  Country: US (occurrence: US)
  Receive Date: 20140731
  Receipt Date: 20140731
  Transmission Date: 20150326
  Serious: No
  Sender: FDA-Public Use
  Company Number: US-TARO-2013P1012563

PATIENT
  Age: 69 Year
  Sex: Male
  Weight: 78.02 kg

DRUGS (4)
  1. UNSPECIFIED SUNSCREEN [Concomitant]
     Dosage: QD
     Route: 061
  2. FLUOCINONIDE CREAM USP 0.05% [Suspect]
     Active Substance: FLUOCINONIDE
     Indication: DERMATITIS CONTACT
     Dosage: BID-QID
     Route: 061
     Dates: start: 20130711, end: 20130714
  3. FLUTICASONE NASAL SPRAY (ROXANE LABS) [Concomitant]
  4. FLUOCINONIDE CREAM USP 0.05% [Suspect]
     Active Substance: FLUOCINONIDE
     Dosage: BID-QID
     Route: 061
     Dates: start: 20130711, end: 20130714

REACTIONS (3)
  - Drug ineffective [Not Recovered/Not Resolved]
  - Blister [Recovered/Resolved]
  - Rash [Recovered/Resolved]

NARRATIVE: CASE EVENT DATE: 201307
